FAERS Safety Report 7554119-7 (Version None)
Quarter: 2011Q2

REPORT INFORMATION
  Report Type: 
  Country: None (occurrence: None)
  Receive Date: 20110610
  Receipt Date: 20110426
  Transmission Date: 20111010
  Serious: Yes (Hospitalization)
  Sender: FDA-Public Use
  Company Number: WAES 1104USA03826

PATIENT
  Age: 62 Year
  Sex: Male
  Weight: 63.9572 kg

DRUGS (12)
  1. DILTIAZEM HYDROCHLORIDE [Concomitant]
  2. AZACITIDINE UNK [Suspect]
     Indication: DIFFUSE LARGE B-CELL LYMPHOMA
     Dosage: 55 MG/M[2]/DAILY
     Dates: start: 20110401, end: 20110426
  3. MORPHINE SULFATE [Concomitant]
  4. LOVENOX [Concomitant]
  5. DEXAMETHASONE [Concomitant]
  6. FLUCONAZOLE [Concomitant]
  7. HYDROMORPHONE HCL [Concomitant]
  8. OMEPRAZOLE [Concomitant]
  9. CAP VORINOSTAT UNK [Suspect]
     Indication: DIFFUSE LARGE B-CELL LYMPHOMA
     Dosage: 300 MG/BID/PO
     Route: 048
     Dates: start: 20110401, end: 20110426
  10. ATORVASTATIN CALCIUM [Concomitant]
  11. LORAZEPAM [Concomitant]
  12. LINEZOLID [Concomitant]

REACTIONS (3)
  - DIFFUSE LARGE B-CELL LYMPHOMA [None]
  - NEOPLASM PROGRESSION [None]
  - CANCER PAIN [None]
